FAERS Safety Report 8882063 (Version 2)
Quarter: 2013Q1

REPORT INFORMATION
  Report Type: Spontaneous
  Country: US (occurrence: US)
  Receive Date: 20121105
  Receipt Date: 20130122
  Transmission Date: 20140127
  Serious: No
  Sender: FDA-Public Use
  Company Number: US-009507513-1211USA000599

PATIENT
  Age: 56 Year
  Sex: Female
  Weight: 52.15 kg

DRUGS (1)
  1. PEG-INTRON [Suspect]
     Indication: HEPATITIS C
     Dosage: REDIPEN: 80 MCG/0.5ML
     Route: 058
     Dates: start: 20121002

REACTIONS (6)
  - Osteoporosis [Unknown]
  - Tongue disorder [Unknown]
  - Tongue blistering [Unknown]
  - Arthralgia [Unknown]
  - Arthralgia [Unknown]
  - Influenza like illness [Unknown]
